FAERS Safety Report 11717649 (Version 17)
Quarter: 2019Q1

REPORT INFORMATION
  Report Type: Spontaneous
  Country: US (occurrence: US)
  Receive Date: 20151110
  Receipt Date: 20190322
  Transmission Date: 20190417
  Serious: Yes (Other)
  Sender: FDA-Public Use
  Company Number: PHEH2015US022852

PATIENT
  Sex: Female

DRUGS (6)
  1. ZOFRAN [Suspect]
     Active Substance: ONDANSETRON HYDROCHLORIDE
     Dosage: UNK
     Route: 048
     Dates: end: 201410
  2. ONDANSETRON HYDROCHLORIDE. [Suspect]
     Active Substance: ONDANSETRON HYDROCHLORIDE
     Indication: PRODUCT USED FOR UNKNOWN INDICATION
     Dosage: 8 MG, UNK
     Route: 048
     Dates: start: 20140520, end: 20140621
  3. ONDANSETRON [Suspect]
     Active Substance: ONDANSETRON
     Indication: PRODUCT USED FOR UNKNOWN INDICATION
     Route: 048
  4. ONDANSETRON [Suspect]
     Active Substance: ONDANSETRON
     Indication: MORNING SICKNESS
     Dosage: 8 MG, BID
     Route: 065
     Dates: start: 20140520, end: 20140621
  5. ZOFRAN ODT [Suspect]
     Active Substance: ONDANSETRON HYDROCHLORIDE
     Indication: MORNING SICKNESS
     Dosage: 8 MG, TID
     Route: 048
  6. ZOFRAN [Suspect]
     Active Substance: ONDANSETRON HYDROCHLORIDE
     Indication: MORNING SICKNESS
     Dosage: 8 MG, UNK
     Route: 048
     Dates: start: 20140520, end: 20140621

REACTIONS (8)
  - Oligohydramnios [Unknown]
  - Emotional distress [Unknown]
  - Injury [Unknown]
  - Maternal exposure during pregnancy [Unknown]
  - Pain [Unknown]
  - Anxiety [Unknown]
  - Product use in unapproved indication [Unknown]
  - Cystitis [Unknown]
